FAERS Safety Report 6067056-4 (Version None)
Quarter: 2009Q1

REPORT INFORMATION
  Report Type: 
  Country: None (occurrence: None)
  Receive Date: 20090204
  Receipt Date: 20090204
  Transmission Date: 20090719
  Serious: No
  Sender: FDA-Public Use
  Company Number: None

PATIENT

DRUGS (2)
  1. FER-IN-SOL 15MG/0.6 ML MEAD JOHNSON + CO [Suspect]
  2. FER-IN-SOL 15 MG/1 ML MEAD JOHNSON + CO [Suspect]

REACTIONS (1)
  - MEDICATION ERROR [None]
